FAERS Safety Report 7435907-4 (Version None)
Quarter: 2011Q2

REPORT INFORMATION
  Report Type: 
  Country: None (occurrence: None)
  Receive Date: 20110425
  Receipt Date: 20110422
  Transmission Date: 20111010
  Serious: Yes (Hospitalization)
  Sender: FDA-Public Use
  Company Number: JP-ABBOTT-11P-087-0713224-00

PATIENT
  Sex: Female
  Weight: 41.8 kg

DRUGS (12)
  1. METHOTREXATE [Suspect]
     Dates: start: 20101025
  2. LOXOPROFEN SODIUM HYDRATE [Concomitant]
     Indication: RHEUMATOID ARTHRITIS
  3. DRIED THYROID [Concomitant]
     Indication: PRODUCT USED FOR UNKNOWN INDICATION
  4. ISONIAZID [Concomitant]
     Indication: PROPHYLAXIS
     Dates: start: 20100929
  5. METHOTREXATE [Suspect]
     Indication: PRODUCT USED FOR UNKNOWN INDICATION
     Dates: start: 20100201
  6. ERYTHROMYCIN STEARATE [Concomitant]
     Indication: BRONCHIOLITIS
  7. PYRIDOXAL PHOSPHATE HYDRATE [Concomitant]
     Indication: PROPHYLAXIS
     Dates: start: 20100929
  8. CARBOCISTEINE [Concomitant]
     Indication: BRONCHIOLITIS
  9. HUMIRA [Suspect]
     Indication: RHEUMATOID ARTHRITIS
     Route: 058
     Dates: start: 20101025, end: 20110311
  10. LEVOTHYROXINE SODIUM HYDRATE [Concomitant]
     Indication: HYPOTHYROIDISM
  11. METHOTREXATE [Concomitant]
     Indication: RHEUMATOID ARTHRITIS
     Dosage: 2MG-10MG ONCE A WEEK
     Dates: start: 20100205
  12. FOLIC ACID [Concomitant]
     Indication: RHEUMATOID ARTHRITIS
     Dates: start: 20100205

REACTIONS (3)
  - ORGANISING PNEUMONIA [None]
  - ARTHRITIS [None]
  - RHEUMATOID ARTHRITIS [None]
